FAERS Safety Report 6246537-4 (Version None)
Quarter: 2009Q2

REPORT INFORMATION
  Report Type: 
  Country: None (occurrence: None)
  Receive Date: 20090624
  Receipt Date: 20090624
  Transmission Date: 20091009
  Serious: Yes (Other)
  Sender: FDA-Public Use
  Company Number: None

PATIENT
  Age: 38 Year
  Sex: Female
  Weight: 74.8435 kg

DRUGS (2)
  1. SINGULAIR [Suspect]
     Indication: ASTHMA
     Dosage: 1 TABLET QD OTHER
     Dates: start: 20080716
  2. SINGULAIR [Suspect]
     Indication: MULTIPLE ALLERGIES
     Dosage: 1 TABLET QD OTHER
     Dates: start: 20080716

REACTIONS (5)
  - ABNORMAL DREAMS [None]
  - FEELING GUILTY [None]
  - FLASHBACK [None]
  - MENTAL DISORDER [None]
  - NIGHTMARE [None]
